FAERS Safety Report 26214615 (Version 1)
Quarter: 2025Q4

REPORT INFORMATION
  Report Type: Spontaneous
  Country: EU (occurrence: EU)
  Receive Date: 20251230
  Receipt Date: 20251230
  Transmission Date: 20260117
  Serious: Yes (Death)
  Sender: MYLAN
  Company Number: EU-AGUETTANT-2025001696

PATIENT
  Sex: Female

DRUGS (8)
  1. EPINEPHRINE [Suspect]
     Active Substance: EPINEPHRINE
     Indication: Product used for unknown indication
     Dosage: UNK
  2. EPINEPHRINE [Suspect]
     Active Substance: EPINEPHRINE
     Dosage: UNK
     Route: 065
  3. EPINEPHRINE [Suspect]
     Active Substance: EPINEPHRINE
     Dosage: UNK
     Route: 065
  4. EPINEPHRINE [Suspect]
     Active Substance: EPINEPHRINE
     Dosage: UNK
  5. BRICANYL [Suspect]
     Active Substance: TERBUTALINE SULFATE
     Indication: Product used for unknown indication
     Dosage: UNK
  6. BRICANYL [Suspect]
     Active Substance: TERBUTALINE SULFATE
     Dosage: UNK
     Route: 065
  7. BRICANYL [Suspect]
     Active Substance: TERBUTALINE SULFATE
     Dosage: UNK
     Route: 065
  8. BRICANYL [Suspect]
     Active Substance: TERBUTALINE SULFATE
     Dosage: UNK

REACTIONS (2)
  - Death [Fatal]
  - Drug effect less than expected [Fatal]
